FAERS Safety Report 9350382 (Version 4)
Quarter: 2013Q4

REPORT INFORMATION
  Report Type: Spontaneous
  Country: BR (occurrence: BR)
  Receive Date: 20130617
  Receipt Date: 20131017
  Transmission Date: 20140711
  Serious: Yes (Other)
  Sender: FDA-Public Use
  Company Number: BR-RANBAXY-2013R5-70174

PATIENT
  Age: 60 Year
  Sex: Female
  Weight: 70 kg

DRUGS (4)
  1. NORTRIPTYLINE [Suspect]
     Indication: DEPRESSION
     Dosage: 25 MG, QD
     Route: 048
     Dates: start: 201305, end: 20130602
  2. NORTRIPTYLINE [Suspect]
     Indication: DEPRESSION
     Dosage: 25 MG, QD
     Route: 048
     Dates: start: 20130603, end: 201307
  3. FLUIR [Concomitant]
     Indication: EMPHYSEMA
     Dosage: 1 DF, BID
     Route: 065
  4. ENALAPRIL [Concomitant]
     Indication: HYPERTENSION
     Dosage: 1 DF, TID
     Route: 065

REACTIONS (10)
  - Hypoaesthesia [Recovered/Resolved]
  - Hypoaesthesia [Recovered/Resolved]
  - Dizziness [Not Recovered/Not Resolved]
  - Saliva altered [Recovered/Resolved]
  - Peripheral coldness [Recovered/Resolved]
  - Headache [Not Recovered/Not Resolved]
  - Pyrexia [Recovered/Resolved]
  - Pharyngeal oedema [Recovered/Resolved]
  - Drug dose omission [Recovered/Resolved]
  - Drug administration error [Recovered/Resolved]
